FAERS Safety Report 9264991 (Version 2)
Quarter: 2013Q2

REPORT INFORMATION
  Report Type: Spontaneous
  Country: IL (occurrence: IL)
  Receive Date: 20130501
  Receipt Date: 20130509
  Transmission Date: 20140414
  Serious: Yes (Hospitalization)
  Sender: FDA-Public Use
  Company Number: IL-ELI_LILLY_AND_COMPANY-IL201304006650

PATIENT
  Age: 79 Year
  Sex: Female

DRUGS (7)
  1. FORTEO [Suspect]
     Indication: OSTEOPOROSIS
     Dosage: 20 UG, QD
     Dates: start: 20130101, end: 20130415
  2. NORMALOL [Concomitant]
     Dosage: 50 MG, UNK
  3. VASODIP [Concomitant]
  4. MICROPIRIN [Concomitant]
  5. SIMVACOR [Concomitant]
  6. CALCIUM [Concomitant]
  7. VITAMIN D NOS [Concomitant]

REACTIONS (3)
  - Fall [Unknown]
  - Dizziness [Recovered/Resolved]
  - Confusional state [Recovered/Resolved]
